FAERS Safety Report 9863029 (Version 1)
Quarter: 2014Q1

REPORT INFORMATION
  Report Type: Spontaneous
  Country: FR (occurrence: FR)
  Receive Date: 20140203
  Receipt Date: 20140203
  Transmission Date: 20141002
  Serious: Yes (Congenital Anomaly)
  Sender: FDA-Public Use
  Company Number: PHHY2014FR011256

PATIENT
  Age: 1 Day
  Sex: Female
  Weight: 2.94 kg

DRUGS (10)
  1. TEGRETOL [Suspect]
     Dosage: UNK UKN, UNK
     Route: 064
  2. BI PROFENID [Suspect]
     Dosage: UNK UKN, UNK
     Route: 064
  3. DAFALGAN CODEINE [Suspect]
     Dosage: UNK UKN, UNK
     Route: 064
  4. NEXPLANON [Suspect]
     Dosage: UNK UKN, UNK
     Route: 064
  5. LYRICA [Concomitant]
     Dosage: UNK UKN, UNK
     Route: 064
  6. TRAMADOL [Concomitant]
     Dosage: UNK UKN, UNK
     Route: 064
  7. BOTOX [Concomitant]
     Dosage: UNK UKN, UNK
     Route: 064
  8. MAGNETIC RESONANCE IMAGING CONTRAST MEDIA [Concomitant]
     Dosage: UNK UKN, UNK
     Route: 064
  9. LAROXYL [Concomitant]
     Dosage: UNK UKN, UNK
     Route: 064
  10. VALIUM [Concomitant]
     Dosage: UNK UKN, UNK
     Route: 064

REACTIONS (3)
  - Coarctation of the aorta [Recovering/Resolving]
  - Ventricular septal defect [Recovering/Resolving]
  - Foetal exposure during pregnancy [Unknown]
